FAERS Safety Report 6209383-3 (Version None)
Quarter: 2009Q2

REPORT INFORMATION
  Report Type: 
  Country: None (occurrence: None)
  Receive Date: 20090529
  Receipt Date: 20090526
  Transmission Date: 20091009
  Serious: Yes (Death, Hospitalization, Other)
  Sender: FDA-Public Use
  Company Number: PHEH2007US09958

PATIENT
  Sex: Male

DRUGS (8)
  1. EXJADE [Suspect]
     Indication: MYELOFIBROSIS
     Dosage: 1000 MG, QD
     Route: 048
     Dates: start: 20070503, end: 20070602
  2. DIOVAN [Suspect]
     Indication: HYPERTENSION
     Dosage: UNK
  3. HYDROCHLOROTHIAZIDE [Concomitant]
  4. LASIX [Concomitant]
  5. DIOVAN HCT [Concomitant]
  6. PROCRIT [Concomitant]
  7. FLOMAX [Concomitant]
  8. PREDNISONE [Concomitant]

REACTIONS (32)
  - ANURIA [None]
  - ARTHROPATHY [None]
  - AZOTAEMIA [None]
  - BLOOD BICARBONATE DECREASED [None]
  - BLOOD CALCIUM DECREASED [None]
  - BLOOD CREATININE INCREASED [None]
  - BLOOD SODIUM DECREASED [None]
  - BLOOD UREA INCREASED [None]
  - BREATH SOUNDS ABNORMAL [None]
  - CONFUSIONAL STATE [None]
  - CONJUNCTIVAL PALLOR [None]
  - DRY MOUTH [None]
  - DYSPNOEA [None]
  - ECCHYMOSIS [None]
  - EPISTAXIS [None]
  - HAEMOGLOBIN DECREASED [None]
  - HYPERKALAEMIA [None]
  - HYPOTENSION [None]
  - INTERNATIONAL NORMALISED RATIO INCREASED [None]
  - KNEE ARTHROPLASTY [None]
  - LABILE BLOOD PRESSURE [None]
  - MENTAL STATUS CHANGES [None]
  - MOUTH HAEMORRHAGE [None]
  - OEDEMA PERIPHERAL [None]
  - RENAL FAILURE ACUTE [None]
  - RENAL TUBULAR NECROSIS [None]
  - RESPIRATORY DEPRESSION [None]
  - SLEEP DISORDER [None]
  - TACHYPNOEA [None]
  - TRANSFUSION [None]
  - URINARY RETENTION [None]
  - WHITE BLOOD CELL COUNT INCREASED [None]
